FAERS Safety Report 7394882-1 (Version None)
Quarter: 2011Q2

REPORT INFORMATION
  Report Type: 
  Country: None (occurrence: None)
  Receive Date: 20110405
  Receipt Date: 20110329
  Transmission Date: 20111010
  Serious: Yes (Hospitalization, Other)
  Sender: FDA-Public Use
  Company Number: A0921336A

PATIENT
  Age: 68 Year
  Sex: Male

DRUGS (2)
  1. VOTRIENT [Suspect]
     Indication: RENAL CANCER
     Dosage: 800MGD PER DAY
     Route: 048
     Dates: start: 20110207
  2. ZOLEDRONIC ACID [Concomitant]
     Route: 042

REACTIONS (3)
  - CEREBROVASCULAR ACCIDENT [None]
  - ANAEMIA [None]
  - THROMBOCYTOPENIA [None]
